FAERS Safety Report 5500092-2 (Version None)
Quarter: 2007Q4

REPORT INFORMATION
  Report Type: 
  Country: None (occurrence: None)
  Receive Date: 20071024
  Receipt Date: 20071016
  Transmission Date: 20080405
  Serious: Yes (Other)
  Sender: FDA-Public Use
  Company Number: 144-20785-07101143

PATIENT
  Age: 44 Year
  Sex: Female

DRUGS (5)
  1. THALIDOMIDE [Suspect]
     Indication: MULTIPLE MYELOMA
     Dosage: 600 MG, 12 IN 1 D, ORAL; 400 MG, 8 IN 1 D, ORAL
     Route: 048
     Dates: start: 20070905, end: 20070924
  2. THALIDOMIDE [Suspect]
     Indication: MULTIPLE MYELOMA
     Dosage: 600 MG, 12 IN 1 D, ORAL; 400 MG, 8 IN 1 D, ORAL
     Route: 048
     Dates: start: 20070925
  3. DEXAMETHASONE TAB [Concomitant]
  4. OMEPRAZOLE [Concomitant]
  5. ASPIRIN [Concomitant]

REACTIONS (1)
  - JAUNDICE [None]
